FAERS Safety Report 10154168 (Version 2)
Quarter: 2014Q2

REPORT INFORMATION
  Report Type: Spontaneous
  Country: US (occurrence: US)
  Receive Date: 20140506
  Receipt Date: 20140521
  Transmission Date: 20141212
  Serious: No
  Sender: FDA-Public Use
  Company Number: US-JNJFOC-20140419680

PATIENT
  Age: 32 Year
  Sex: Male
  Weight: 63.5 kg

DRUGS (1)
  1. DURAGESIC [Suspect]
     Indication: MUSCULAR DYSTROPHY
     Route: 062

REACTIONS (4)
  - Withdrawal syndrome [Recovered/Resolved]
  - Drug dose omission [Unknown]
  - Product adhesion issue [Unknown]
  - Drug ineffective [Unknown]
